FAERS Safety Report 24292771 (Version 1)
Quarter: 2024Q3

REPORT INFORMATION
  Report Type: Spontaneous
  Country: US (occurrence: None)
  Receive Date: 20240906
  Receipt Date: 20240906
  Transmission Date: 20241016
  Serious: No
  Sender: DOMPE FARMACEUTICI
  Company Number: US-FARMAPROD-202308-202310-3061

PATIENT
  Sex: Female

DRUGS (15)
  1. OXERVATE [Suspect]
     Active Substance: CENEGERMIN-BKBJ
     Indication: Neurotrophic keratopathy
     Route: 047
     Dates: start: 20230914
  2. BENFOTIAMINE [Concomitant]
     Active Substance: BENFOTIAMINE
  3. LIVER PROTECT [Concomitant]
     Dosage: 200-200 MG
  4. PROBIOTIC-10 10B [Concomitant]
  5. CENTRUM SILVER WOMEN [Concomitant]
  6. PEPCID AC [Concomitant]
     Active Substance: FAMOTIDINE
  7. COENZYME Q10 [Concomitant]
     Active Substance: DIETARY SUPPLEMENT\UBIDECARENONE
     Dosage: 100MG-5
  8. VITAMIN D3 [Concomitant]
     Active Substance: CHOLECALCIFEROL
  9. ESTER-C [Concomitant]
     Dosage: 1000-200MG
  10. ASPIRIN [Concomitant]
     Active Substance: ASPIRIN
  11. GLIMEPIRIDE [Concomitant]
     Active Substance: GLIMEPIRIDE
  12. LATANOPROST [Concomitant]
     Active Substance: LATANOPROST
  13. METOPROLOL SUCCINATE [Concomitant]
     Active Substance: METOPROLOL SUCCINATE
  14. LIVALO [Concomitant]
     Active Substance: PITAVASTATIN CALCIUM
  15. AMLODIPINE BESYLATE\OLMESARTAN MEDOXOMIL [Concomitant]
     Active Substance: AMLODIPINE BESYLATE\OLMESARTAN MEDOXOMIL

REACTIONS (1)
  - Hypersensitivity [Unknown]
